FAERS Safety Report 20174176 (Version 1)
Quarter: 2021Q4

REPORT INFORMATION
  Report Type: Spontaneous
  Country: JP (occurrence: JP)
  Receive Date: 20211213
  Receipt Date: 20211213
  Transmission Date: 20220303
  Serious: No
  Sender: FDA-Public Use
  Company Number: JP-JNJFOC-20211157778

PATIENT

DRUGS (3)
  1. ONEDURO [Suspect]
     Active Substance: FENTANYL
     Indication: Product used for unknown indication
     Dosage: DOSE UNKNOWN STRENGTH: UNKNOWN
     Route: 062
     Dates: start: 2021
  2. ONEDURO [Suspect]
     Active Substance: FENTANYL
  3. ONEDURO [Suspect]
     Active Substance: FENTANYL

REACTIONS (4)
  - Administration site erythema [Unknown]
  - Administration site pruritus [Unknown]
  - Administration site inflammation [Unknown]
  - Product adhesion issue [Unknown]
